FAERS Safety Report 8145095-7 (Version None)
Quarter: 2012Q1

REPORT INFORMATION
  Report Type: 
  Country: None (occurrence: None)
  Receive Date: 20120217
  Receipt Date: 20120213
  Transmission Date: 20120608
  Serious: No
  Sender: FDA-Public Use
  Company Number: PHEH2012US003783

PATIENT
  Sex: Male

DRUGS (5)
  1. NIACIN [Concomitant]
  2. LIPITOR [Concomitant]
  3. TASIGNA [Suspect]
     Dosage: 300 MG, BID
     Route: 048
  4. NEXIUM [Concomitant]
  5. FISH OIL [Concomitant]

REACTIONS (5)
  - DRY SKIN [None]
  - DRY EYE [None]
  - PAIN IN EXTREMITY [None]
  - DYSPEPSIA [None]
  - CHEST PAIN [None]
